FAERS Safety Report 6060662-2 (Version None)
Quarter: 2009Q1

REPORT INFORMATION
  Report Type: 
  Country: None (occurrence: None)
  Receive Date: 20090130
  Receipt Date: 20090130
  Transmission Date: 20090719
  Serious: No
  Sender: FDA-Public Use
  Company Number: None

PATIENT
  Age: 67 Year
  Sex: Male

DRUGS (3)
  1. LOVENOX [Suspect]
     Indication: FIBULA FRACTURE
     Dosage: 40MG, 4CC ONCE DAILY SUBCUTANEOUS
     Route: 058
     Dates: start: 20090111, end: 20090112
  2. LOVENOX [Suspect]
     Indication: ORTHOPEDIC PROCEDURE
     Dosage: 40MG, 4CC ONCE DAILY SUBCUTANEOUS
     Route: 058
     Dates: start: 20090111, end: 20090112
  3. IBUPROFEN TABLETS [Suspect]
     Indication: ARTHRALGIA
     Dosage: 800 MG PO T.I.D. PRN PO
     Route: 048
     Dates: start: 20090111, end: 20090112

REACTIONS (2)
  - INSOMNIA [None]
  - RESTLESS LEGS SYNDROME [None]
